FAERS Safety Report 19820666 (Version 1)
Quarter: 2021Q3

REPORT INFORMATION
  Report Type: Spontaneous
  Country: US (occurrence: US)
  Receive Date: 20210912
  Receipt Date: 20210912
  Transmission Date: 20211014
  Serious: Yes (Other)
  Sender: FDA-Public Use
  Company Number: None

PATIENT
  Age: 72 Year
  Sex: Female
  Weight: 76.05 kg

DRUGS (2)
  1. VITAMIN [Concomitant]
     Active Substance: VITAMINS
  2. SYNTHROID [Suspect]
     Active Substance: LEVOTHYROXINE SODIUM
     Indication: AUTOIMMUNE THYROIDITIS
     Dosage: ?          QUANTITY:1 TABLET(S);?
     Route: 048
     Dates: start: 20210227, end: 20210912

REACTIONS (2)
  - Headache [None]
  - Gastrointestinal pain [None]

NARRATIVE: CASE EVENT DATE: 20210220
